FAERS Safety Report 5378955-0 (Version None)
Quarter: 2007Q3

REPORT INFORMATION
  Report Type: 
  Country: None (occurrence: None)
  Receive Date: 20070705
  Receipt Date: 20070622
  Transmission Date: 20080115
  Serious: Yes (Death)
  Sender: FDA-Public Use
  Company Number: FR-GENENTECH-238211

PATIENT
  Age: 49 Year
  Sex: Male

DRUGS (1)
  1. RAPTIVA [Suspect]
     Indication: PSORIASIS
     Dosage: UNK, UNK
     Dates: start: 20060201

REACTIONS (1)
  - MYOCARDIAL INFARCTION [None]
